FAERS Safety Report 4276525-9 (Version None)
Quarter: 2004Q1

REPORT INFORMATION
  Report Type: 
  Country: None (occurrence: None)
  Receive Date: 20040120
  Receipt Date: 20040107
  Transmission Date: 20041129
  Serious: Yes (Hospitalization, Other)
  Sender: FDA-Public Use
  Company Number: 2004000970

PATIENT
  Sex: 0

DRUGS (3)
  1. TIKOSYN [Suspect]
     Indication: ILL-DEFINED DISORDER
  2. FLUOROURACIL [Suspect]
     Indication: ILL-DEFINED DISORDER
  3. WARFARIN SODIUM [Suspect]
     Indication: ILL-DEFINED DISORDER

REACTIONS (7)
  - ARRHYTHMIA [None]
  - COAGULOPATHY [None]
  - DIARRHOEA [None]
  - DRUG INTERACTION [None]
  - ELECTROCARDIOGRAM QT CORRECTED INTERVAL PROLONGED [None]
  - HYPOKALAEMIA [None]
  - INTERNATIONAL NORMALISED RATIO INCREASED [None]
